FAERS Safety Report 7811581-X (Version None)
Quarter: 2011Q4

REPORT INFORMATION
  Report Type: 
  Country: None (occurrence: None)
  Receive Date: 20111013
  Receipt Date: 20111010
  Transmission Date: 20120403
  Serious: Yes (Other)
  Sender: FDA-Public Use
  Company Number: NO-TEVA-304222ISR

PATIENT

DRUGS (7)
  1. CYCLOPHOSPHAMIDE [Suspect]
     Indication: HODGKIN'S DISEASE
     Route: 042
  2. PROCARBAZINE HYDROCHLORIDE [Suspect]
     Indication: HODGKIN'S DISEASE
     Route: 048
  3. PREDNISOLONE [Suspect]
     Indication: HODGKIN'S DISEASE
     Route: 048
  4. DOXORUBICIN HCL [Suspect]
     Indication: HODGKIN'S DISEASE
     Route: 042
  5. ETOPOSIDE [Suspect]
     Indication: HODGKIN'S DISEASE
     Route: 042
  6. VINCRISTINE [Suspect]
     Indication: HODGKIN'S DISEASE
     Route: 042
  7. BLEOMYCIN SULFATE [Suspect]
     Indication: HODGKIN'S DISEASE
     Route: 042

REACTIONS (1)
  - THROMBOSIS [None]
